FAERS Safety Report 7912104-7 (Version None)
Quarter: 2011Q4

REPORT INFORMATION
  Report Type: 
  Country: None (occurrence: None)
  Receive Date: 20111114
  Receipt Date: 20111103
  Transmission Date: 20120403
  Serious: Yes (Other)
  Sender: FDA-Public Use
  Company Number: CA-ROCHE-GNE301671

PATIENT
  Sex: Female

DRUGS (2)
  1. XOLAIR [Suspect]
     Dosage: UNK
     Dates: start: 20100419
  2. XOLAIR [Suspect]
     Indication: ASTHMA
     Dosage: 375 MG, Q2W
     Route: 058
     Dates: start: 20090126

REACTIONS (11)
  - JOINT SWELLING [None]
  - SKIN ULCER [None]
  - HYPERSENSITIVITY [None]
  - PYREXIA [None]
  - GENERALISED ERYTHEMA [None]
  - PAIN [None]
  - MYALGIA [None]
  - OPEN WOUND [None]
  - MOVEMENT DISORDER [None]
  - SKIN NECROSIS [None]
  - RASH PUSTULAR [None]
